FAERS Safety Report 14993738 (Version 2)
Quarter: 2018Q4

REPORT INFORMATION
  Report Type: Spontaneous
  Country: IT (occurrence: IT)
  Receive Date: 20180611
  Receipt Date: 20181023
  Transmission Date: 20190204
  Serious: Yes (Other)
  Sender: FDA-Public Use
  Company Number: IT-SUN PHARMACEUTICAL INDUSTRIES LTD-2018RR-175312

PATIENT
  Age: 44 Year
  Sex: Female

DRUGS (2)
  1. ROCEFIN 1 G/3,5 ML POLVERE E SOLVENTE PER SOLUZIONE INIETTABILE PER US [Suspect]
     Active Substance: CEFTRIAXONE SODIUM
     Indication: BRONCHITIS
     Dosage: 2 DF, UNK
     Route: 030
     Dates: end: 20180413
  2. CLARITHROMYCIN. [Suspect]
     Active Substance: CLARITHROMYCIN
     Indication: BRONCHITIS
     Dosage: 1 G, UNK
     Route: 048
     Dates: end: 20180413

REACTIONS (4)
  - Angioedema [Recovering/Resolving]
  - Pruritus [Recovering/Resolving]
  - Rash [Recovering/Resolving]
  - Urticaria [Recovering/Resolving]

NARRATIVE: CASE EVENT DATE: 20180413
